FAERS Safety Report 8157315-3 (Version None)
Quarter: 2012Q1

REPORT INFORMATION
  Report Type: 
  Country: None (occurrence: None)
  Receive Date: 20120222
  Receipt Date: 20120214
  Transmission Date: 20120608
  Serious: Yes (Death)
  Sender: FDA-Public Use
  Company Number: US-CELGENEUS-163-21880-12021692

PATIENT
  Sex: Female

DRUGS (5)
  1. REVLIMID [Suspect]
     Indication: MULTIPLE MYELOMA
     Dosage: 25 MILLIGRAM
     Route: 048
     Dates: start: 20110624
  2. COUMADIN [Concomitant]
     Dosage: 4 MILLIGRAM
     Route: 048
  3. DEXAMETHASONE [Concomitant]
     Dosage: .75 MILLIGRAM
     Route: 048
  4. DILAUDID [Concomitant]
     Dosage: 2 MILLIGRAM
     Route: 048
  5. PEPCID [Concomitant]
     Dosage: 20 MILLIGRAM
     Route: 048

REACTIONS (1)
  - DEATH [None]
